FAERS Safety Report 5850775-X (Version None)
Quarter: 2008Q3

REPORT INFORMATION
  Report Type: 
  Country: None (occurrence: None)
  Receive Date: 20080820
  Receipt Date: 20080815
  Transmission Date: 20090109
  Serious: Yes (Hospitalization, Other)
  Sender: FDA-Public Use
  Company Number: JP-BAYER-200824343GPV

PATIENT
  Age: 54 Year
  Sex: Female

DRUGS (2)
  1. NIFEDIPINE [Suspect]
     Indication: HYPERTENSION
     Route: 065
     Dates: start: 20060201
  2. ANTIBIOTICS [Concomitant]
     Indication: PNEUMONIA BACTERIAL
     Route: 048

REACTIONS (2)
  - EOSINOPHILIC PNEUMONIA [None]
  - SJOGREN'S SYNDROME [None]
